FAERS Safety Report 11823511 (Version 1)
Quarter: 2015Q4

REPORT INFORMATION
  Report Type: Spontaneous
  Country: US (occurrence: US)
  Receive Date: 20151210
  Receipt Date: 20151210
  Transmission Date: 20160305
  Serious: Yes (Other)
  Sender: FDA-Public Use
  Company Number: US-ASTRAZENECA-2015SE92239

PATIENT
  Sex: Female
  Weight: 65.3 kg

DRUGS (10)
  1. PANTOPRAZOLE [Concomitant]
     Active Substance: PANTOPRAZOLE SODIUM
     Indication: DYSPEPSIA
     Route: 048
  2. METOPROLOL [Suspect]
     Active Substance: METOPROLOL
     Indication: HYPERTENSION
     Route: 048
  3. TAMOXIFEN [Suspect]
     Active Substance: TAMOXIFEN
     Route: 048
  4. XARELTO [Concomitant]
     Active Substance: RIVAROXABAN
     Indication: EMBOLISM
     Route: 048
     Dates: start: 201410
  5. PANTOPRAZOLE [Concomitant]
     Active Substance: PANTOPRAZOLE SODIUM
     Indication: DYSPEPSIA
     Route: 048
  6. FASLODEX [Suspect]
     Active Substance: FULVESTRANT
     Indication: BREAST CANCER METASTATIC
     Route: 030
     Dates: start: 201311
  7. WARFARIN [Concomitant]
     Active Substance: WARFARIN
  8. IBRANCE [Suspect]
     Active Substance: PALBOCICLIB
     Indication: BREAST CANCER METASTATIC
     Dosage: 100 MG CAPSULE EVERY DAY FOR 21 DAYS ,NON AZ PRODUCT
     Route: 048
     Dates: start: 201505
  9. LETROZOLE. [Concomitant]
     Active Substance: LETROZOLE
  10. AROMASIN [Concomitant]
     Active Substance: EXEMESTANE
     Route: 048
     Dates: start: 201505

REACTIONS (3)
  - Tumour marker increased [Unknown]
  - Injection site erythema [Unknown]
  - Underdose [Unknown]
